FAERS Safety Report 7762304-4 (Version None)
Quarter: 2011Q3

REPORT INFORMATION
  Report Type: 
  Country: None (occurrence: None)
  Receive Date: 20110919
  Receipt Date: 20110919
  Transmission Date: 20111222
  Serious: Yes (Hospitalization)
  Sender: FDA-Public Use
  Company Number: None

PATIENT
  Age: 56 Year
  Sex: Male
  Weight: 58.8 kg

DRUGS (2)
  1. IBUPROFEN [Suspect]
     Indication: PAIN
     Dosage: 600 MG BID PO
     Route: 048
     Dates: start: 20110531, end: 20110602
  2. INDOMETHACIN [Suspect]
     Indication: PAIN
     Dosage: 50 MG TID PO
     Route: 048
     Dates: start: 20110607, end: 20110608

REACTIONS (2)
  - HAEMATOCRIT DECREASED [None]
  - GASTROINTESTINAL HAEMORRHAGE [None]
